FAERS Safety Report 4797324-5 (Version None)
Quarter: 2005Q4

REPORT INFORMATION
  Report Type: 
  Country: None (occurrence: None)
  Receive Date: 20051013
  Receipt Date: 20040810
  Transmission Date: 20060501
  Serious: Yes (Disabling)
  Sender: FDA-Public Use
  Company Number: 2004SE04543

PATIENT
  Age: 58 Year
  Sex: Male

DRUGS (5)
  1. TENORMIN [Suspect]
     Indication: HYPERTENSION
     Route: 048
     Dates: start: 20040520, end: 20040630
  2. TENORMIN [Suspect]
     Route: 048
     Dates: start: 20040701, end: 20040721
  3. BLOPRESS TABLETS 8 [Suspect]
     Indication: HYPERTENSION
     Route: 048
     Dates: start: 20040304, end: 20040721
  4. BLOPRESS TABLETS 8 [Suspect]
     Route: 048
  5. DIOVAN [Concomitant]
     Indication: HYPERTENSION
     Route: 048
     Dates: start: 20030306, end: 20040304

REACTIONS (2)
  - HYPERSENSITIVITY [None]
  - PUSTULAR PSORIASIS [None]
